FAERS Safety Report 7277548-8 (Version None)
Quarter: 2010Q4

REPORT INFORMATION
  Report Type: 
  Country: None (occurrence: None)
  Receive Date: 20101201
  Receipt Date: 20091020
  Transmission Date: 20110411
  Serious: Yes (Other)
  Sender: FDA-Public Use
  Company Number: 293019

PATIENT
  Age: 63 Year
  Sex: Female
  Weight: 65.8 kg

DRUGS (2)
  1. LEVEMIR [Suspect]
     Indication: TYPE 1 DIABETES MELLITUS
     Dosage: 25 U IN AM, 5 U IN PM, SUBCUTANEOUS
     Route: 058
     Dates: start: 20090709
  2. NOVOLOG [Suspect]
     Indication: TYPE 1 DIABETES MELLITUS
     Dates: start: 20000101

REACTIONS (2)
  - BLOOD GLUCOSE DECREASED [None]
  - PARALYSIS [None]
